FAERS Safety Report 19498246 (Version 3)
Quarter: 2021Q3

REPORT INFORMATION
  Report Type: Spontaneous
  Country: US (occurrence: US)
  Receive Date: 20210706
  Receipt Date: 20210811
  Transmission Date: 20211014
  Serious: No
  Sender: FDA-Public Use
  Company Number: US-PFIZER INC-2021702470

PATIENT
  Age: 66 Year
  Sex: Female
  Weight: 112.04 kg

DRUGS (2)
  1. PREMARIN [Suspect]
     Active Substance: ESTROGENS, CONJUGATED
     Indication: HORMONE LEVEL ABNORMAL
     Dosage: 0.05 G, 2X/WEEK
     Route: 067
  2. PREMARIN [Suspect]
     Active Substance: ESTROGENS, CONJUGATED
     Dosage: 0.05 G, 2X/WEEK
     Route: 067

REACTIONS (4)
  - Product cleaning inadequate [Not Recovered/Not Resolved]
  - Incorrect dose administered [Not Recovered/Not Resolved]
  - Device issue [Not Recovered/Not Resolved]
  - Off label use [Unknown]
